FAERS Safety Report 11072411 (Version 1)
Quarter: 2015Q2

REPORT INFORMATION
  Report Type: Spontaneous
  Country: DE (occurrence: DE)
  Receive Date: 20150428
  Receipt Date: 20150428
  Transmission Date: 20150821
  Serious: Yes (Hospitalization)
  Sender: FDA-Public Use
  Company Number: DE-CELGENE-DEU-2015043953

PATIENT
  Age: 67 Year
  Sex: Female

DRUGS (1)
  1. VIDAZA [Suspect]
     Active Substance: AZACITIDINE
     Indication: MYELODYSPLASTIC SYNDROME
     Route: 050

REACTIONS (1)
  - Humerus fracture [Recovered/Resolved]

NARRATIVE: CASE EVENT DATE: 20141120
